FAERS Safety Report 14474768 (Version 2)
Quarter: 2018Q1

REPORT INFORMATION
  Report Type: Spontaneous
  Country: AT (occurrence: AT)
  Receive Date: 20180201
  Receipt Date: 20180215
  Transmission Date: 20180509
  Serious: Yes (Life-Threatening, Other)
  Sender: FDA-Public Use
  Company Number: AT-PFIZER INC-2018031805

PATIENT
  Age: 42 Year
  Sex: Female
  Weight: 65 kg

DRUGS (9)
  1. DEPOCON (MEDROXYPROGESTERONE ACETATE) [Suspect]
     Active Substance: MEDROXYPROGESTERONE ACETATE
     Dosage: 150 MG, UNK
     Route: 030
     Dates: start: 20170904
  2. DEPOCON (MEDROXYPROGESTERONE ACETATE) [Suspect]
     Active Substance: MEDROXYPROGESTERONE ACETATE
     Indication: CONTRACEPTION
     Dosage: 150 MG, UNK
     Route: 030
     Dates: start: 20160510
  3. DEPOCON (MEDROXYPROGESTERONE ACETATE) [Suspect]
     Active Substance: MEDROXYPROGESTERONE ACETATE
     Dosage: 150 MG, UNK
     Route: 030
     Dates: start: 20161115
  4. DEPOCON (MEDROXYPROGESTERONE ACETATE) [Suspect]
     Active Substance: MEDROXYPROGESTERONE ACETATE
     Dosage: 150 MG, UNK
     Route: 030
     Dates: start: 20170216
  5. DEPOCON (MEDROXYPROGESTERONE ACETATE) [Suspect]
     Active Substance: MEDROXYPROGESTERONE ACETATE
     Dosage: 150 MG, UNK
     Route: 030
     Dates: start: 20170612
  6. DEPOCON (MEDROXYPROGESTERONE ACETATE) [Suspect]
     Active Substance: MEDROXYPROGESTERONE ACETATE
     Dosage: 150 MG, UNK
     Route: 030
     Dates: start: 20171106
  7. DEPOCON (MEDROXYPROGESTERONE ACETATE) [Suspect]
     Active Substance: MEDROXYPROGESTERONE ACETATE
     Dosage: 150 MG, UNK
     Route: 030
     Dates: start: 20161012
  8. DEPOCON (MEDROXYPROGESTERONE ACETATE) [Suspect]
     Active Substance: MEDROXYPROGESTERONE ACETATE
     Indication: MENORRHAGIA
     Dosage: 150 MG, UNK
     Route: 030
     Dates: start: 20160729
  9. DEPOCON (MEDROXYPROGESTERONE ACETATE) [Suspect]
     Active Substance: MEDROXYPROGESTERONE ACETATE
     Dosage: 150 MG, UNK
     Route: 030
     Dates: start: 20180122, end: 20180122

REACTIONS (19)
  - Erythema [Recovered/Resolved]
  - Pain in extremity [Recovered/Resolved]
  - Malaise [Recovered/Resolved]
  - Inappropriate schedule of drug administration [Recovered/Resolved]
  - Metrorrhagia [None]
  - Injection site pain [None]
  - Angioedema [Recovered/Resolved]
  - Visual impairment [Recovered/Resolved]
  - Musculoskeletal pain [Recovered/Resolved]
  - Cardiovascular disorder [Recovered/Resolved]
  - Injection site pain [Recovered/Resolved]
  - Product use in unapproved indication [Recovered/Resolved]
  - Urticaria [Recovered/Resolved]
  - Peripheral swelling [Recovered/Resolved]
  - Vasodilatation [None]
  - Hypersensitivity [Recovered/Resolved]
  - Dizziness [Recovered/Resolved]
  - Pulse abnormal [Recovered/Resolved]
  - Heart rate increased [Recovered/Resolved]

NARRATIVE: CASE EVENT DATE: 20180122
